FAERS Safety Report 7296994-X (Version None)
Quarter: 2011Q1

REPORT INFORMATION
  Report Type: 
  Country: None (occurrence: None)
  Receive Date: 20110216
  Receipt Date: 20110214
  Transmission Date: 20110831
  Serious: Yes (Other)
  Sender: FDA-Public Use
  Company Number: US-PFIZER INC-2011032774

PATIENT
  Sex: Female
  Weight: 77.098 kg

DRUGS (6)
  1. ZYRTEC [Suspect]
     Indication: PERFUME SENSITIVITY
  2. ACETYLSALICYLIC ACID [Suspect]
     Dosage: UNK
     Route: 048
  3. LIPITOR [Suspect]
     Indication: BLOOD CHOLESTEROL ABNORMAL
     Dosage: 20 MG, 1X/DAY
     Route: 048
     Dates: start: 20100101
  4. ZYRTEC [Suspect]
     Indication: ALLERGY TO METALS
  5. AMLODIPINE AND OLMESARTAN MEDOXOMIL [Suspect]
     Indication: HYPERTENSION
     Dosage: 20 MG, 1X/DAY
     Route: 048
     Dates: start: 20100101
  6. ZYRTEC [Suspect]
     Indication: HYPERSENSITIVITY
     Dosage: 10 MG, 1X/DAY
     Route: 048
     Dates: start: 20080101

REACTIONS (7)
  - INSOMNIA [None]
  - FEELING DRUNK [None]
  - PROCEDURAL PAIN [None]
  - ACTIVITIES OF DAILY LIVING IMPAIRED [None]
  - INAPPROPRIATE SCHEDULE OF DRUG ADMINISTRATION [None]
  - KNEE OPERATION [None]
  - SOMNOLENCE [None]
